FAERS Safety Report 4689717-1 (Version None)
Quarter: 2005Q2

REPORT INFORMATION
  Report Type: 
  Country: None (occurrence: None)
  Receive Date: 20050614
  Receipt Date: 20050606
  Transmission Date: 20051028
  Serious: Yes (Other)
  Sender: FDA-Public Use
  Company Number: PHBS2005BR08064

PATIENT
  Age: 20 Year
  Sex: Male
  Weight: 66 kg

DRUGS (1)
  1. ZELMAC [Suspect]
     Indication: MUCOSAL INFLAMMATION
     Dosage: 6 MG, QD
     Route: 048

REACTIONS (9)
  - ABDOMINAL PAIN [None]
  - BACK PAIN [None]
  - DIARRHOEA HAEMORRHAGIC [None]
  - DISCOMFORT [None]
  - FEELING ABNORMAL [None]
  - INFLUENZA LIKE ILLNESS [None]
  - SKIN EXFOLIATION [None]
  - VISION BLURRED [None]
  - WEIGHT DECREASED [None]
